FAERS Safety Report 12728546 (Version 2)
Quarter: 2016Q4

REPORT INFORMATION
  Report Type: Spontaneous
  Country: FR (occurrence: FR)
  Receive Date: 20160909
  Receipt Date: 20161004
  Transmission Date: 20170207
  Serious: Yes (Hospitalization, Other)
  Sender: FDA-Public Use
  Company Number: FR-BAXTER-2016BAX045610

PATIENT
  Age: 46 Year
  Sex: Female

DRUGS (10)
  1. ENDOXAN 1000 MG, POUDRE POUR SOLUTION INJECTABLE [Suspect]
     Active Substance: CYCLOPHOSPHAMIDE
     Indication: INVASIVE LOBULAR BREAST CARCINOMA
     Route: 065
     Dates: start: 20160629
  2. PREDNISONE. [Suspect]
     Active Substance: PREDNISONE
     Indication: PRODUCT USED FOR UNKNOWN INDICATION
     Dosage: ORAL THE EVENING BEFORE, THE EVENING AND MORNING FOLLOWING THE ADMINISTRATION OF DOCETAXEL
     Route: 048
  3. ONDANSETRON [Suspect]
     Active Substance: ONDANSETRON
     Indication: PRODUCT USED FOR UNKNOWN INDICATION
     Dosage: ONE IN THE MORNING AND ONE IN THE EVENING THE DAY OF THE ADMINISTRATION OF DOCETAXEL
     Route: 048
     Dates: start: 20160629
  4. NEULASTA [Concomitant]
     Active Substance: PEGFILGRASTIM
     Indication: PRODUCT USED FOR UNKNOWN INDICATION
     Route: 065
     Dates: start: 20160701, end: 20160701
  5. METHYLPREDNISOLONE. [Concomitant]
     Active Substance: METHYLPREDNISOLONE
     Indication: PRODUCT USED FOR UNKNOWN INDICATION
     Dosage: SLOW IV IN 20 ML OF SODIUM CHLORIDE 0.9%
     Route: 042
  6. DOCETAXEL ACCORD [Suspect]
     Active Substance: DOCETAXEL
     Indication: INVASIVE LOBULAR BREAST CARCINOMA
     Dosage: UNIT DOSE: 75 MG/M2, FIRST CYCLE
     Route: 065
     Dates: start: 20160629
  7. GRANISETRON [Suspect]
     Active Substance: GRANISETRON
     Indication: PRODUCT USED FOR UNKNOWN INDICATION
     Dosage: ONE IN THE MORNING AND ONE IN THE EVENING THE DAY OF THE ADMINISTRATION OF DOCETAXEL
     Route: 048
     Dates: start: 20160629
  8. 0.9% SODIUM CHLORIDE [Concomitant]
     Active Substance: SODIUM CHLORIDE
     Indication: MEDICATION DILUTION
     Dosage: SLOW IV IN 20 ML OF SODIUM CHLORIDE 0.9%
     Route: 042
  9. METOCLOPRAMIDE. [Suspect]
     Active Substance: METOCLOPRAMIDE
     Indication: NAUSEA
     Dosage: 5 MINUTES BEFORE THE ADMINISTRATION OF DOCETAXEL
     Route: 042
     Dates: start: 20160629
  10. METOCLOPRAMIDE. [Suspect]
     Active Substance: METOCLOPRAMIDE
     Dosage: BEFORE MEALS IF NAUSEA
     Route: 048

REACTIONS (11)
  - Peritoneal disorder [Recovering/Resolving]
  - Colonic abscess [Recovering/Resolving]
  - Pneumoperitoneum [Recovering/Resolving]
  - Peritonitis [Recovering/Resolving]
  - Diverticulitis [Recovering/Resolving]
  - Gastrointestinal perforation [Recovering/Resolving]
  - Gastrointestinal wall thickening [Recovering/Resolving]
  - Abdominal adhesions [Recovering/Resolving]
  - Abdominal pain [Recovering/Resolving]
  - Peritoneal disorder [Recovering/Resolving]
  - Systemic inflammatory response syndrome [Recovering/Resolving]

NARRATIVE: CASE EVENT DATE: 20160708
